FAERS Safety Report 6153793-X (Version None)
Quarter: 2009Q2

REPORT INFORMATION
  Report Type: 
  Country: None (occurrence: None)
  Receive Date: 20090414
  Receipt Date: 20090401
  Transmission Date: 20091009
  Serious: Yes (Other)
  Sender: FDA-Public Use
  Company Number: GB-RANBAXY-2009RR-22952

PATIENT
  Age: 44 Year
  Sex: Male

DRUGS (4)
  1. SIMVASTATIN [Suspect]
     Indication: HYPERCHOLESTEROLAEMIA
     Dosage: 40 MG, UNK
     Route: 048
     Dates: start: 20090304
  2. ERYTHROMYCIN [Concomitant]
  3. FLUCLOXACILLIN [Concomitant]
  4. QUININE [Concomitant]

REACTIONS (3)
  - AMNESIA [None]
  - RASH GENERALISED [None]
  - SKIN EXFOLIATION [None]
